FAERS Safety Report 21648562 (Version 4)
Quarter: 2023Q2

REPORT INFORMATION
  Report Type: Report from Study
  Country: JP (occurrence: JP)
  Receive Date: 20221128
  Receipt Date: 20230403
  Transmission Date: 20230722
  Serious: Yes (Death, Other)
  Sender: FDA-Public Use
  Company Number: JP-CHUGAI-2022046277

PATIENT
  Sex: Male
  Weight: 50 kg

DRUGS (7)
  1. EMICIZUMAB [Suspect]
     Active Substance: EMICIZUMAB
     Indication: Haemophilia A without inhibitors
     Dosage: 3 MILLIGRAM/KILOGRAM, ONCE/WEEK
     Route: 058
     Dates: start: 20200131, end: 20200220
  2. EMICIZUMAB [Suspect]
     Active Substance: EMICIZUMAB
     Route: 058
     Dates: start: 20200305
  3. ELOCTATE [Concomitant]
     Active Substance: EFMOROCTOCOG ALFA
     Indication: Feeling abnormal
     Dosage: 2000 INTERNATIONAL UNIT
     Route: 065
     Dates: start: 20200203, end: 20200203
  4. ELOCTATE [Concomitant]
     Active Substance: EFMOROCTOCOG ALFA
     Indication: Tooth extraction
     Dosage: 2000 INTERNATIONAL UNIT
     Route: 065
     Dates: start: 20200210, end: 20200210
  5. ELOCTATE [Concomitant]
     Active Substance: EFMOROCTOCOG ALFA
     Dosage: 2000 INTERNATIONAL UNIT
     Route: 065
     Dates: start: 20200217, end: 20200217
  6. ELOCTATE [Concomitant]
     Active Substance: EFMOROCTOCOG ALFA
     Dosage: 2000 INTERNATIONAL UNIT
     Route: 065
     Dates: start: 20200407, end: 20200407
  7. ELOCTATE [Concomitant]
     Active Substance: EFMOROCTOCOG ALFA
     Dosage: 2000 INTERNATIONAL UNIT
     Route: 065
     Dates: start: 20200501, end: 20200501

REACTIONS (4)
  - Respiratory arrest [Fatal]
  - Intra-abdominal haemorrhage [Fatal]
  - Abdominal infection [Unknown]
  - Hepatic cancer [Unknown]

NARRATIVE: CASE EVENT DATE: 20220101
